FAERS Safety Report 11651594 (Version 6)
Quarter: 2016Q4

REPORT INFORMATION
  Report Type: Report from Study
  Country: IT (occurrence: IT)
  Receive Date: 20151022
  Receipt Date: 20161116
  Transmission Date: 20170206
  Serious: Yes (Death, Other)
  Sender: FDA-Public Use
  Company Number: IT-ROCHE-1637158

PATIENT

DRUGS (4)
  1. METHOTREXATE. [Suspect]
     Active Substance: METHOTREXATE
     Indication: CENTRAL NERVOUS SYSTEM LYMPHOMA
     Dosage: 3.6 G/M2 ON DAY1
     Route: 065
  2. RITUXIMAB [Suspect]
     Active Substance: RITUXIMAB
     Indication: CENTRAL NERVOUS SYSTEM LYMPHOMA
     Dosage: ON DAY 5
     Route: 042
  3. CYTARABINE. [Suspect]
     Active Substance: CYTARABINE
     Indication: CENTRAL NERVOUS SYSTEM LYMPHOMA
     Dosage: 2 G/M2, ON DAYS 2 AND 3.
     Route: 065
  4. THIOTEPA. [Suspect]
     Active Substance: THIOTEPA
     Indication: CENTRAL NERVOUS SYSTEM LYMPHOMA
     Dosage: ON DAY 4
     Route: 065

REACTIONS (17)
  - Gastrointestinal disorder [Unknown]
  - Cardiotoxicity [Unknown]
  - Pulmonary embolism [Unknown]
  - Nephropathy toxic [Unknown]
  - Mucosal inflammation [Unknown]
  - Hyperglycaemia [Unknown]
  - Anaemia [Unknown]
  - Deep vein thrombosis [Unknown]
  - Neutropenia [Unknown]
  - Thrombocytopenia [Unknown]
  - Febrile neutropenia [Unknown]
  - Hepatotoxicity [Unknown]
  - Coagulopathy [Unknown]
  - Neurotoxicity [Unknown]
  - Death [Fatal]
  - Sudden death [Fatal]
  - Infection [Unknown]
